FAERS Safety Report 16786707 (Version 2)
Quarter: 2020Q3

REPORT INFORMATION
  Report Type: Spontaneous
  Country: GB (occurrence: GB)
  Receive Date: 20190909
  Receipt Date: 20200924
  Transmission Date: 20201102
  Serious: Yes (Life-Threatening, Hospitalization)
  Sender: FDA-Public Use
  Company Number: GB-BAYER-2019-163324

PATIENT
  Age: 47 Year
  Sex: Female

DRUGS (1)
  1. LEVONORGESTREL IUS [UNKNOWN] [Suspect]
     Active Substance: LEVONORGESTREL
     Dosage: UNK
     Route: 015

REACTIONS (7)
  - Pregnancy with contraceptive device [Not Recovered/Not Resolved]
  - Uterine haemorrhage [Recovered/Resolved]
  - Hypovolaemic shock [None]
  - Abdominal pain [Recovered/Resolved]
  - Uterine leiomyoma [Recovered/Resolved]
  - Uterine inversion [Recovered/Resolved]
  - Retroperitonitis [Not Recovered/Not Resolved]
